FAERS Safety Report 21866184 (Version 1)
Quarter: 2023Q1

REPORT INFORMATION
  Report Type: Report from Study
  Country: US (occurrence: US)
  Receive Date: 20230116
  Receipt Date: 20230116
  Transmission Date: 20230418
  Serious: No
  Sender: FDA-Public Use
  Company Number: US-ABBVIE-22K-163-4505799-00

PATIENT
  Age: 50 Year
  Sex: Female

DRUGS (3)
  1. SKYRIZI [Suspect]
     Active Substance: RISANKIZUMAB-RZAA
     Indication: Psoriasis
     Dosage: TIME INTERVAL: 1 TOTAL: 150 MG/ML INJECT 1 PEN SQ AT WEEK 0;?FORM STRENGTH: 150 MG
     Route: 058
     Dates: start: 202202, end: 202202
  2. SKYRIZI [Suspect]
     Active Substance: RISANKIZUMAB-RZAA
     Dosage: TIME INTERVAL: 1 TOTAL: 150 MG/ML INJECT 1 PEN SQ AT WEEK 4;?FORM STRENGTH: 150 MG
     Route: 058
     Dates: start: 202203, end: 202203
  3. SKYRIZI [Suspect]
     Active Substance: RISANKIZUMAB-RZAA
     Dosage: FORM STRENGTH: 150 MG;?FREQUENCY TEXT: EVERY 12 WEEKS
     Route: 058
     Dates: start: 20220613

REACTIONS (5)
  - Erythema [Unknown]
  - Pruritus [Unknown]
  - Hyperhidrosis [Unknown]
  - Therapeutic product effect delayed [Unknown]
  - Pain [Unknown]

NARRATIVE: CASE EVENT DATE: 20220801
